FAERS Safety Report 19946495 (Version 1)
Quarter: 2021Q4

REPORT INFORMATION
  Report Type: Spontaneous
  Country: US (occurrence: US)
  Receive Date: 20211012
  Receipt Date: 20211012
  Transmission Date: 20220303
  Serious: No
  Sender: FDA-Public Use
  Company Number: US-TEVA-2021-US-1962234

PATIENT
  Age: 69 Year
  Sex: Female

DRUGS (2)
  1. AUSTEDO [Suspect]
     Active Substance: DEUTETRABENAZINE
     Indication: Tardive dyskinesia
     Dosage: TWO 6 MG TABLETS
     Route: 065
     Dates: start: 20210909, end: 202109
  2. AUSTEDO [Suspect]
     Active Substance: DEUTETRABENAZINE
     Dosage: 3 6 MG TABLETS PER DAY (2 IN MORNING AND ONE IN NIGHT)
     Route: 065
     Dates: start: 202109

REACTIONS (2)
  - Adverse event [Unknown]
  - Therapeutic product effect incomplete [Unknown]

NARRATIVE: CASE EVENT DATE: 20210916
